FAERS Safety Report 20407518 (Version 5)
Quarter: 2022Q2

REPORT INFORMATION
  Report Type: Spontaneous
  Country: US (occurrence: US)
  Receive Date: 20220131
  Receipt Date: 20220412
  Transmission Date: 20220721
  Serious: Yes (Death, Other)
  Sender: FDA-Public Use
  Company Number: US-GILEAD-2021-0560763

PATIENT
  Age: 44 Year
  Sex: Male

DRUGS (1)
  1. VEKLURY [Suspect]
     Active Substance: REMDESIVIR
     Indication: Product used for unknown indication
     Dosage: UNK
     Route: 065
     Dates: start: 202111

REACTIONS (8)
  - Pulmonary haemorrhage [Unknown]
  - Death [Fatal]
  - Cough [Unknown]
  - Pulmonary pain [Recovered/Resolved]
  - Generalised oedema [Unknown]
  - Haemoptysis [Unknown]
  - Tricuspid valve thickening [Unknown]
  - Recalled product administered [Recovered/Resolved]

NARRATIVE: CASE EVENT DATE: 20211101
